FAERS Safety Report 4991466-7 (Version None)
Quarter: 2006Q2

REPORT INFORMATION
  Report Type: 
  Country: None (occurrence: None)
  Receive Date: 20060502
  Receipt Date: 20060418
  Transmission Date: 20061013
  Serious: Yes (Hospitalization)
  Sender: FDA-Public Use
  Company Number: 2006P1000016

PATIENT
  Age: 66 Year
  Sex: Male

DRUGS (3)
  1. RETEPLASE (RETEPLASE) [Suspect]
     Indication: ACUTE MYOCARDIAL INFARCTION
     Dosage: IV
     Route: 042
     Dates: start: 20051228, end: 20051228
  2. REOPRO [Suspect]
     Indication: ACUTE MYOCARDIAL INFARCTION
     Dosage: IV
     Route: 042
     Dates: start: 20051228, end: 20051228
  3. HEPARIN [Suspect]
     Indication: ACUTE MYOCARDIAL INFARCTION

REACTIONS (6)
  - CORONARY ARTERY STENOSIS [None]
  - EPISTAXIS [None]
  - HAEMORRHAGIC STROKE [None]
  - SKIN HAEMORRHAGE [None]
  - SUBARACHNOID HAEMORRHAGE [None]
  - THROMBOLYSIS [None]
